FAERS Safety Report 4839207-8 (Version None)
Quarter: 2005Q4

REPORT INFORMATION
  Report Type: 
  Country: None (occurrence: None)
  Receive Date: 20051025
  Receipt Date: 20040929
  Transmission Date: 20060501
  Serious: Yes (Hospitalization, Other)
  Sender: FDA-Public Use
  Company Number: HQWYE467501OCT04

PATIENT
  Age: 38 Year
  Sex: Male
  Weight: 98.9 kg

DRUGS (17)
  1. RAPAMUNE [Suspect]
     Indication: RENAL TRANSPLANT
     Dosage: 5 TABLET 1X PER 1 DAY,
     Dates: start: 20040907, end: 20040924
  2. ANTIHYPERTENSIVES [Concomitant]
  3. CLARITIN [Concomitant]
  4. SODIUM BICARBONATE IN PLASTIC CONTAINER [Concomitant]
  5. PROPIONATE/SALMETEROL XINAFOATE) [Concomitant]
  6. ANDROGEL [Concomitant]
  7. ZETIA [Concomitant]
  8. SEPTRA [Concomitant]
  9. NIFEREX (POLYSACCHARIDE-IRON COMPLEX) [Concomitant]
  10. LABETALOL [Concomitant]
  11. CELLCEPT (MYCOPHENOLAGE MOFETIL) [Concomitant]
  12. ASPIRIN [Concomitant]
  13. NEUTRA-PHOS (POTASSIUM PHOSPHATE DIBASIC/POTASSIUM PHOSPHATE MONOBASIC [Concomitant]
  14. PEPCID [Concomitant]
  15. WELLBUTRIN SR [Concomitant]
  16. MAG-OX (MAGNESIUM OXIDE) [Concomitant]
  17. ALBUTEROL [Concomitant]

REACTIONS (1)
  - WHITE BLOOD CELL COUNT DECREASED [None]
